FAERS Safety Report 5691865-4 (Version None)
Quarter: 2008Q2

REPORT INFORMATION
  Report Type: 
  Country: None (occurrence: None)
  Receive Date: 20080328
  Receipt Date: 20070413
  Transmission Date: 20081010
  Serious: Yes (Hospitalization, Other)
  Sender: FDA-Public Use
  Company Number: 36046

PATIENT
  Age: 62 Year
  Sex: Female

DRUGS (1)
  1. ADRIAMYCIN PFS [Suspect]
     Indication: BREAST CANCER
     Dosage: 132MG/IV
     Route: 042
     Dates: start: 20070226

REACTIONS (1)
  - FEBRILE NEUTROPENIA [None]
